FAERS Safety Report 8512831-7 (Version None)
Quarter: 2012Q3

REPORT INFORMATION
  Report Type: 
  Country: None (occurrence: None)
  Receive Date: 20120716
  Receipt Date: 20120703
  Transmission Date: 20120928
  Serious: Yes (Hospitalization)
  Sender: FDA-Public Use
  Company Number: JP-PFIZER INC-2011149529

PATIENT
  Age: 65 Year
  Sex: Female
  Weight: 50.25 kg

DRUGS (24)
  1. RANIMUSTINE [Suspect]
     Indication: ADULT T-CELL LYMPHOMA/LEUKAEMIA
     Dosage: 60 MG/M2 X 1/4 WEEK
     Route: 041
     Dates: start: 20110316
  2. SULFAMETHOXAZOLE AND TRIMETHOPRIM [Concomitant]
     Dosage: UNK
     Route: 048
  3. ALENDRONATE SODIUM [Concomitant]
     Dosage: 35 MG, WEEKLY
     Route: 048
     Dates: start: 20111028
  4. DOXORUBICIN HYDROCHLORIDE [Suspect]
     Dosage: 30 MG/M2 X 1/4 WEEK
     Route: 041
     Dates: start: 20110316
  5. ETOPOPHOS PRESERVATIVE FREE [Suspect]
     Indication: ADULT T-CELL LYMPHOMA/LEUKAEMIA
     Dosage: 100 MG/M2 X 1/4 WEEK
     Route: 041
     Dates: start: 20110324
  6. CARBOPLATIN [Suspect]
     Indication: ADULT T-CELL LYMPHOMA/LEUKAEMIA
     Dosage: 250 MG/M2 X 1/4 WEEK
     Route: 041
     Dates: start: 20110324
  7. MAGMITT [Concomitant]
     Dosage: 330 MG, 2X/DAY
     Route: 048
     Dates: start: 20110906
  8. MUCOSOLVAN [Concomitant]
     Dosage: 15 MG, 3X/DAY
     Route: 048
     Dates: start: 20111130, end: 20111219
  9. PREDNISOLONE [Suspect]
     Indication: ADULT T-CELL LYMPHOMA/LEUKAEMIA
     Dosage: 40 MG/M2 X 1/4 WEEK
     Route: 048
     Dates: start: 20110309
  10. PREDNISOLONE [Suspect]
     Dosage: 2 MG/M2, 1X/DAY
     Route: 048
     Dates: start: 20110324
  11. ZOVIRAX [Concomitant]
     Dosage: 200 MG, 1X/DAY
     Route: 048
     Dates: start: 20110629, end: 20111214
  12. DIFLUCAN [Concomitant]
     Dosage: 100 MG, 1X/DAY
     Route: 048
     Dates: end: 20110627
  13. CIPROFLOXACIN HCL [Concomitant]
     Dosage: 200 MG, 3X/DAY
     Route: 048
     Dates: start: 20110622, end: 20110627
  14. OLOPATADINE HCL [Concomitant]
     Dosage: 5 MG, 2X/DAY
     Route: 048
     Dates: start: 20110728
  15. CEFAZOLIN SODIUM [Concomitant]
     Dosage: 1 DF, 3X/DAY
     Route: 048
     Dates: start: 20111017
  16. DOXORUBICIN HYDROCHLORIDE [Suspect]
     Indication: ADULT T-CELL LYMPHOMA/LEUKAEMIA
     Dosage: 40 MG/M2 X 1/4 WEEK
     Route: 041
     Dates: start: 20110309
  17. PREDNISOLONE [Suspect]
     Dosage: 1MG/KG X 1/2 WEEK
     Route: 041
     Dates: start: 20111213, end: 20111214
  18. VINDESINE SULFATE [Suspect]
     Indication: ADULT T-CELL LYMPHOMA/LEUKAEMIA
     Dosage: 2.4 MG/M2 X 1/4 WEEK
     Route: 041
     Dates: start: 20110324
  19. ZOLPIDEM [Concomitant]
     Dosage: UNK
     Route: 048
  20. VINCRISTINE SULFATE [Suspect]
     Indication: ADULT T-CELL LYMPHOMA/LEUKAEMIA
     Dosage: 1 MG/M2 X 1/4 WEEK
     Route: 041
     Dates: start: 20110309
  21. PREDNISOLONE [Suspect]
     Dosage: 40 MG/M2 X 1/4 WEEK
     Route: 048
     Dates: start: 20110316
  22. DIFLUCAN [Concomitant]
     Dosage: 100 MG, 1X/DAY
     Route: 048
     Dates: start: 20110829, end: 20111214
  23. CYCLOPHOSPHAMIDE [Suspect]
     Indication: ADULT T-CELL LYMPHOMA/LEUKAEMIA
     Dosage: 350 MG/M2 X 1/4 WEEK
     Route: 041
     Dates: start: 20110309
  24. LANSOPRAZOLE [Concomitant]
     Dosage: 15 MG, 1X/DAY
     Route: 048
     Dates: end: 20111213

REACTIONS (2)
  - INTERSTITIAL LUNG DISEASE [None]
  - PNEUMONIA [None]
